FAERS Safety Report 8996795 (Version 1)
Quarter: 2012Q4

REPORT INFORMATION
  Report Type: Spontaneous
  Country: US (occurrence: None)
  Receive Date: 20121228
  Receipt Date: 20121228
  Transmission Date: 20130627
  Serious: Yes (Hospitalization)
  Sender: FDA-Public Use
  Company Number: None

PATIENT
  Sex: Male

DRUGS (1)
  1. POTIGA [Suspect]
     Indication: SEIZURES
     Dosage: 200mg  3 x day  oral
     Route: 048

REACTIONS (4)
  - Rash [None]
  - Rash [None]
  - Rash [None]
  - Urinary retention [None]
